FAERS Safety Report 7700661-5 (Version None)
Quarter: 2011Q3

REPORT INFORMATION
  Report Type: 
  Country: None (occurrence: None)
  Receive Date: 20110822
  Receipt Date: 20110822
  Transmission Date: 20111222
  Serious: Yes (Life-Threatening, Hospitalization)
  Sender: FDA-Public Use
  Company Number: None

PATIENT
  Sex: Male
  Weight: 94 kg

DRUGS (6)
  1. DIGOXIN [Concomitant]
  2. DONEPEZIL HCL [Concomitant]
  3. NIFEDEIPINE [Concomitant]
  4. PRADAXA [Suspect]
     Indication: CEREBROVASCULAR ACCIDENT PROPHYLAXIS
     Dosage: 150 MG
     Route: 048
     Dates: start: 20110707, end: 20110807
  5. PRADAXA [Suspect]
     Indication: ATRIAL FIBRILLATION
     Dosage: 150 MG
     Route: 048
     Dates: start: 20110707, end: 20110807
  6. SIMAVASTATIN [Concomitant]

REACTIONS (2)
  - ISCHAEMIC STROKE [None]
  - APHASIA [None]
